FAERS Safety Report 8373928-8 (Version None)
Quarter: 2012Q2

REPORT INFORMATION
  Report Type: 
  Country: None (occurrence: None)
  Receive Date: 20120521
  Receipt Date: 20120511
  Transmission Date: 20120825
  Serious: Yes (Other)
  Sender: FDA-Public Use
  Company Number: US-ABBOTT-12P-163-0934888-00

PATIENT
  Sex: Female
  Weight: 61.29 kg

DRUGS (4)
  1. SYNTHROID [Suspect]
     Indication: HYPOTHYROIDISM
     Dates: start: 20000101, end: 20100101
  2. CYTOMEL [Suspect]
     Indication: HYPOTHYROIDISM
     Dates: start: 20100101
  3. LEVOTHYROXINE SODIUM [Suspect]
     Indication: HYPOTHYROIDISM
  4. LIOTHYRONINE SODIUM [Suspect]
     Indication: HYPOTHYROIDISM
     Dosage: 75MCG, DAILY AT NIGHT
     Dates: start: 20120423

REACTIONS (15)
  - FIBROMYALGIA [None]
  - BLOOD CHOLESTEROL INCREASED [None]
  - HYPERSENSITIVITY [None]
  - DRUG INEFFECTIVE [None]
  - SKIN FISSURES [None]
  - WEIGHT INCREASED [None]
  - HYPOTHYROIDISM [None]
  - FATIGUE [None]
  - ALOPECIA [None]
  - EYE SWELLING [None]
  - HEART RATE IRREGULAR [None]
  - DRY SKIN [None]
  - SOMNOLENCE [None]
  - HYPERTENSION [None]
  - PRURITUS GENERALISED [None]
